FAERS Safety Report 5526257-1 (Version None)
Quarter: 2007Q4

REPORT INFORMATION
  Report Type: 
  Country: None (occurrence: None)
  Receive Date: 20071127
  Receipt Date: 20071115
  Transmission Date: 20080405
  Serious: Yes (Other)
  Sender: FDA-Public Use
  Company Number: US-JNJFOC-20071101203

PATIENT
  Sex: Female

DRUGS (6)
  1. ORTHO TRI-CYCLEN LO [Suspect]
     Indication: CONTRACEPTION
     Route: 048
  2. CLARAVIS [Suspect]
     Route: 048
  3. CLARAVIS [Suspect]
     Indication: DRUG USE FOR UNKNOWN INDICATION
     Route: 048
  4. CHITOSAN [Concomitant]
     Indication: WEIGHT DECREASED
     Route: 065
  5. ISOTRIM [Concomitant]
     Indication: WEIGHT DECREASED
     Route: 065
  6. VITA-PAK [Concomitant]
     Indication: WEIGHT DECREASED
     Route: 065

REACTIONS (4)
  - DRUG DOSE OMISSION [None]
  - DRUG EXPOSURE DURING PREGNANCY [None]
  - MECONIUM STAIN [None]
  - PREGNANCY ON ORAL CONTRACEPTIVE [None]
